FAERS Safety Report 6945752-1 (Version None)
Quarter: 2010Q3

REPORT INFORMATION
  Report Type: 
  Country: None (occurrence: None)
  Receive Date: 20100827
  Receipt Date: 20100823
  Transmission Date: 20110219
  Serious: Yes (Other)
  Sender: FDA-Public Use
  Company Number: A0877254A

PATIENT
  Age: 68 Year
  Sex: Female

DRUGS (4)
  1. ADVAIR DISKUS 100/50 [Suspect]
     Indication: ASTHMA
     Dosage: 1PUFF TWICE PER DAY
     Route: 055
     Dates: start: 20090101, end: 20090101
  2. VITAMIN TAB [Concomitant]
  3. RANITIDINA [Concomitant]
  4. WELCHOL [Concomitant]

REACTIONS (4)
  - APHASIA [None]
  - DYSPHONIA [None]
  - TOOTH DISCOLOURATION [None]
  - TOOTH LOSS [None]
